FAERS Safety Report 16833763 (Version 2)
Quarter: 2019Q3

REPORT INFORMATION
  Report Type: Spontaneous
  Country: ES (occurrence: ES)
  Receive Date: 20190920
  Receipt Date: 20190926
  Transmission Date: 20191005
  Serious: Yes (Other)
  Sender: FDA-Public Use
  Company Number: PHHY2019ES215191

PATIENT
  Age: 62 Year
  Sex: Male

DRUGS (1)
  1. METFORMIN [Suspect]
     Active Substance: METFORMIN HYDROCHLORIDE
     Indication: TYPE 2 DIABETES MELLITUS
     Dosage: 850 MG, BID
     Route: 065

REACTIONS (7)
  - Pruritus [Unknown]
  - Drug hypersensitivity [Recovering/Resolving]
  - Dermatitis exfoliative generalised [Recovering/Resolving]
  - Lichenification [Recovering/Resolving]
  - Erythema [Unknown]
  - Skin exfoliation [Unknown]
  - Condition aggravated [Recovering/Resolving]
